FAERS Safety Report 20825591 (Version 1)
Quarter: 2022Q2

REPORT INFORMATION
  Report Type: Report from Study
  Country: GB (occurrence: GB)
  Receive Date: 20220513
  Receipt Date: 20220513
  Transmission Date: 20220721
  Serious: Yes (Hospitalization)
  Sender: FDA-Public Use
  Company Number: GB-MYLANLABS-2022M1035021

PATIENT
  Age: 31 Year
  Sex: Male

DRUGS (2)
  1. WARFARIN [Suspect]
     Active Substance: WARFARIN
     Indication: Thrombosis prophylaxis
     Dosage: UNK
     Route: 065
  2. ASPIRIN [Suspect]
     Active Substance: ASPIRIN
     Indication: Thrombosis prophylaxis
     Dosage: 150 MILLIGRAM, QOD
     Route: 065

REACTIONS (4)
  - Haemorrhage [Unknown]
  - Implant site haematoma [Recovered/Resolved]
  - Anastomotic complication [Unknown]
  - Venous thrombosis [Unknown]
